FAERS Safety Report 11348227 (Version 2)
Quarter: 2015Q3

REPORT INFORMATION
  Report Type: Report from Study
  Country: US (occurrence: US)
  Receive Date: 20150806
  Receipt Date: 20150922
  Transmission Date: 20151125
  Serious: Yes (Other)
  Sender: FDA-Public Use
  Company Number: US-AMGEN-USASP2015078577

PATIENT
  Age: 62 Year
  Sex: Female

DRUGS (1)
  1. NPLATE [Suspect]
     Active Substance: ROMIPLOSTIM
     Indication: PRODUCT USED FOR UNKNOWN INDICATION
     Dosage: UNK
     Route: 065
     Dates: start: 201501

REACTIONS (7)
  - Ear pain [Not Recovered/Not Resolved]
  - Oral pain [Unknown]
  - Headache [Not Recovered/Not Resolved]
  - Lymphoma [Unknown]
  - Dry mouth [Unknown]
  - Dry eye [Unknown]
  - Rash generalised [Unknown]

NARRATIVE: CASE EVENT DATE: 2015
